FAERS Safety Report 14096799 (Version 1)
Quarter: 2017Q4

REPORT INFORMATION
  Report Type: Spontaneous
  Country: US (occurrence: US)
  Receive Date: 20171017
  Receipt Date: 20171017
  Transmission Date: 20180321
  Serious: No
  Sender: FDA-Public Use
  Company Number: US-PFIZER INC-2017443726

PATIENT
  Age: 55 Year
  Sex: Female
  Weight: 68.4 kg

DRUGS (1)
  1. GABAPENTIN. [Suspect]
     Active Substance: GABAPENTIN
     Dosage: UNK

REACTIONS (7)
  - Feeling of body temperature change [Unknown]
  - Withdrawal syndrome [Unknown]
  - Chest pain [Unknown]
  - Yawning [Unknown]
  - Visual impairment [Unknown]
  - Dyspnoea [Unknown]
  - Muscle tightness [Unknown]
